FAERS Safety Report 9052089 (Version 1)
Quarter: 2013Q1

REPORT INFORMATION
  Report Type: Spontaneous
  Country: US (occurrence: None)
  Receive Date: 20130131
  Receipt Date: 20130131
  Transmission Date: 20140127
  Serious: Yes (Hospitalization)
  Sender: FDA-Public Use
  Company Number: None

PATIENT
  Age: 54 Year
  Sex: Male
  Weight: 50.8 kg

DRUGS (11)
  1. LANTUS [Suspect]
     Indication: DIABETES MELLITUS
     Route: 058
  2. NOVOLOG [Suspect]
     Indication: DIABETES MELLITUS
     Route: 058
  3. ASA [Concomitant]
  4. ARICEPT [Concomitant]
  5. LEXAPRO [Concomitant]
  6. SYNTHROID [Concomitant]
  7. LISINOPRIL [Concomitant]
  8. ATIVAN [Concomitant]
  9. PRILOSEC [Concomitant]
  10. LYRICA [Concomitant]
  11. ULTRAM [Concomitant]

REACTIONS (1)
  - Hypoglycaemia [None]
